FAERS Safety Report 15208762 (Version 1)
Quarter: 2018Q3

REPORT INFORMATION
  Report Type: Spontaneous
  Country: FR (occurrence: FR)
  Receive Date: 20180727
  Receipt Date: 20180727
  Transmission Date: 20181010
  Serious: Yes (Death)
  Sender: FDA-Public Use
  Company Number: FR-TEVA-2018-FR-931348

PATIENT
  Age: 27 Year
  Sex: Female
  Weight: 110 kg

DRUGS (7)
  1. TERCIAN [Suspect]
     Active Substance: CYAMEMAZINE
     Indication: BIPOLAR DISORDER
     Route: 048
     Dates: start: 20180530, end: 20180530
  2. BROMAZEPAM [Suspect]
     Active Substance: BROMAZEPAM
     Indication: BIPOLAR DISORDER
     Route: 048
     Dates: start: 20180530, end: 20180530
  3. MIANSERINE (CHLORHYDRATE DE) [Suspect]
     Active Substance: MIANSERIN HYDROCHLORIDE
     Indication: BIPOLAR DISORDER
     Route: 048
     Dates: start: 20180530, end: 20180530
  4. PROZAC [Suspect]
     Active Substance: FLUOXETINE HYDROCHLORIDE
     Indication: BIPOLAR DISORDER
     Route: 048
     Dates: start: 20180530, end: 20180530
  5. CLOMIPRAMINE (CHLORHYDRATE DE) [Suspect]
     Active Substance: CLOMIPRAMINE HYDROCHLORIDE
     Indication: BIPOLAR DISORDER
     Route: 048
     Dates: start: 20180530, end: 20180530
  6. LOXAPAC [Suspect]
     Active Substance: LOXAPINE
     Indication: BIPOLAR DISORDER
     Route: 048
     Dates: start: 20180530, end: 20180530
  7. COUMADINE [Concomitant]
     Active Substance: WARFARIN SODIUM
     Indication: STENT PLACEMENT
     Dosage: 1 DOSAGE FORMS DAILY;
     Route: 048
     Dates: start: 201412, end: 20180530

REACTIONS (3)
  - Cardiac arrest [Fatal]
  - Poisoning deliberate [Fatal]
  - Toxicity to various agents [Fatal]

NARRATIVE: CASE EVENT DATE: 20180530
